FAERS Safety Report 15742218 (Version 1)
Quarter: 2018Q4

REPORT INFORMATION
  Report Type: Spontaneous
  Country: GB (occurrence: GB)
  Receive Date: 20181219
  Receipt Date: 20181219
  Transmission Date: 20190205
  Serious: Yes (Disabling)
  Sender: FDA-Public Use
  Company Number: GB-ANIPHARMA-2018-UK-000167

PATIENT
  Age: 72 Year
  Sex: Female
  Weight: 64 kg

DRUGS (5)
  1. VITAMIN B12 [Concomitant]
     Active Substance: CYANOCOBALAMIN
     Route: 065
  2. ANASTROZOLE. [Suspect]
     Active Substance: ANASTROZOLE
     Indication: BREAST CANCER
     Dosage: 1 MG DAILY
     Route: 048
     Dates: start: 20130902, end: 20140616
  3. ZINC. [Concomitant]
     Active Substance: ZINC
     Route: 065
  4. RANITIDINE. [Concomitant]
     Active Substance: RANITIDINE
     Dosage: 150 MG UNK
     Route: 048
  5. OMEPRAZOLE. [Suspect]
     Active Substance: OMEPRAZOLE
     Dosage: 2 DF DAILY
     Route: 048
     Dates: start: 20120604, end: 20121226

REACTIONS (37)
  - Pain in extremity [Unknown]
  - Peripheral swelling [Unknown]
  - Vulvovaginal dryness [Unknown]
  - Psychiatric symptom [Unknown]
  - Foot deformity [Unknown]
  - Dermatitis [Unknown]
  - Arthralgia [Unknown]
  - Myalgia [Unknown]
  - Drug interaction [Unknown]
  - Paraesthesia [Unknown]
  - Fall [Unknown]
  - Drug hypersensitivity [Unknown]
  - Cyanosis [Unknown]
  - Epigastric discomfort [Unknown]
  - Dry mouth [Unknown]
  - Haemorrhage [Unknown]
  - Bladder irritation [Unknown]
  - Endometrial cancer [Unknown]
  - Night sweats [Unknown]
  - Product substitution issue [Unknown]
  - Vision blurred [Unknown]
  - Skin exfoliation [Unknown]
  - Macrocytosis [Unknown]
  - Skin atrophy [Unknown]
  - Blister [Unknown]
  - Neuropathy peripheral [Unknown]
  - Hyperaesthesia [Unknown]
  - Paraesthesia oral [Unknown]
  - Magnesium deficiency [Unknown]
  - Paraesthesia [Unknown]
  - Diarrhoea [Unknown]
  - Dry skin [Unknown]
  - Balance disorder [Unknown]
  - Hypoaesthesia oral [Unknown]
  - Asthenia [Unknown]
  - Withdrawal syndrome [Unknown]
  - Gait disturbance [Recovered/Resolved with Sequelae]

NARRATIVE: CASE EVENT DATE: 20130905
